FAERS Safety Report 10235509 (Version 2)
Quarter: 2014Q2

REPORT INFORMATION
  Report Type: Spontaneous
  Country: IE (occurrence: None)
  Receive Date: 20140611
  Receipt Date: 20140620
  Transmission Date: 20141212
  Serious: Yes (Hospitalization)
  Sender: FDA-Public Use
  Company Number: 2375682

PATIENT
  Age: 56 Year
  Sex: Female
  Weight: 125 kg

DRUGS (8)
  1. GENTAMICIN SULFATE [Suspect]
     Indication: INFECTION
     Dosage: NOT OTHERWISE SPECIFIED
     Route: 042
     Dates: start: 20140406, end: 20140407
  2. GENTAMICIN SULFATE [Suspect]
     Indication: PYELONEPHRITIS
     Dosage: NOT OTHERWISE SPECIFIED
     Route: 042
     Dates: start: 20140406, end: 20140407
  3. GENTAMICIN SULFATE [Suspect]
     Indication: CHOLECYSTITIS
     Dosage: NOT OTHERWISE SPECIFIED
     Route: 042
     Dates: start: 20140406, end: 20140407
  4. METRONIDAZOLE [Concomitant]
  5. PIPERACILLIN/TAZOBACTAM [Concomitant]
  6. PARACETAMOL [Concomitant]
  7. CHLORDIAZEPOXIDE HYDROCHLORIDE [Concomitant]
  8. CONTRAST MEDIA [Concomitant]

REACTIONS (2)
  - Incorrect dose administered [None]
  - Renal failure acute [None]
